FAERS Safety Report 7806974-0 (Version None)
Quarter: 2011Q4

REPORT INFORMATION
  Report Type: 
  Country: None (occurrence: None)
  Receive Date: 20111011
  Receipt Date: 20111004
  Transmission Date: 20120403
  Serious: No
  Sender: FDA-Public Use
  Company Number: US-B.I. PHARMACEUTICALS,INC./RIDGEFIELD-2011-BP-23469BP

PATIENT
  Sex: Female

DRUGS (13)
  1. COZAAR [Concomitant]
     Indication: HYPERTENSION
     Dosage: 100 MG
     Route: 048
     Dates: start: 20010101
  2. PREMARIN [Concomitant]
     Indication: MENOPAUSE
     Dates: start: 19900101
  3. ASPIRIN [Concomitant]
     Indication: ATRIAL FIBRILLATION
     Dosage: 81 MG
     Route: 048
     Dates: start: 20050101
  4. COREG [Concomitant]
     Indication: ATRIAL FIBRILLATION
     Dosage: 6.25 MG
     Route: 048
     Dates: start: 19950101
  5. MAGNESIUM [Concomitant]
     Indication: ROUTINE HEALTH MAINTENANCE
     Dosage: 400 MG
     Route: 048
     Dates: start: 20000101
  6. CALCIUM CARBONATE [Concomitant]
     Indication: BLOOD CALCIUM DECREASED
     Dates: start: 19960101
  7. PRADAXA [Suspect]
     Indication: ATRIAL FIBRILLATION
     Dosage: 300 MG
     Route: 048
     Dates: start: 20110701
  8. VITAMIN B-12 [Concomitant]
     Indication: ANAEMIA
     Dates: start: 20090101
  9. HYDROCHLOROTHIAZIDE [Concomitant]
     Indication: OEDEMA
     Dates: start: 20000101
  10. SYNTHROID [Concomitant]
     Indication: HYPOTHYROIDISM
     Dates: start: 19900101
  11. AREDS 2 [Concomitant]
     Indication: GLAUCOMA
     Dates: start: 20110701
  12. D3 [Concomitant]
     Indication: ROUTINE HEALTH MAINTENANCE
     Dates: start: 20000101
  13. IRON SUPPLEMENTS [Concomitant]
     Indication: ANAEMIA

REACTIONS (2)
  - DIZZINESS [None]
  - FATIGUE [None]
